FAERS Safety Report 7435348-X (Version None)
Quarter: 2011Q2

REPORT INFORMATION
  Report Type: 
  Country: None (occurrence: None)
  Receive Date: 20110425
  Receipt Date: 20110418
  Transmission Date: 20111010
  Serious: Yes (Other)
  Sender: FDA-Public Use
  Company Number: A0924114A

PATIENT
  Sex: Female
  Weight: 50 kg

DRUGS (1)
  1. LAMICTAL [Suspect]
     Indication: BIPOLAR DISORDER
     Dosage: 150MG PER DAY
     Dates: start: 20070601

REACTIONS (4)
  - VISUAL ACUITY REDUCED [None]
  - KERATITIS [None]
  - DRY EYE [None]
  - EYE INFECTION [None]
